FAERS Safety Report 17993124 (Version 2)
Quarter: 2020Q3

REPORT INFORMATION
  Report Type: Spontaneous
  Country: US (occurrence: US)
  Receive Date: 20200707
  Receipt Date: 20200813
  Transmission Date: 20201103
  Serious: No
  Sender: FDA-Public Use
  Company Number: US-INSUD PHARMA-2006US00162

PATIENT

DRUGS (5)
  1. VITAMIN D NOS [Concomitant]
     Active Substance: VITAMIN D NOS
     Dosage: 5000 IU ONCE DAILY
  2. SLYND [Suspect]
     Active Substance: DROSPIRENONE
     Indication: PREMENSTRUAL SYNDROME
     Dosage: 1 TABLET DAILY
     Route: 048
     Dates: start: 202004
  3. DESVENLAFAXINE. [Concomitant]
     Active Substance: DESVENLAFAXINE
     Indication: DEPRESSION
  4. DESVENLAFAXINE. [Concomitant]
     Active Substance: DESVENLAFAXINE
     Indication: ANXIETY
     Dosage: 50 MG + 25 MG 1X DAY
     Route: 048
  5. PROAIR HFA [Concomitant]
     Active Substance: ALBUTEROL SULFATE
     Dosage: AS NEEDED

REACTIONS (3)
  - Drug effective for unapproved indication [Unknown]
  - Metrorrhagia [Not Recovered/Not Resolved]
  - Intentional product use issue [Unknown]

NARRATIVE: CASE EVENT DATE: 202004
